FAERS Safety Report 7722468-5 (Version None)
Quarter: 2011Q3

REPORT INFORMATION
  Report Type: 
  Country: None (occurrence: None)
  Receive Date: 20110831
  Receipt Date: 20110819
  Transmission Date: 20111222
  Serious: Yes (Hospitalization)
  Sender: FDA-Public Use
  Company Number: US-MUTUAL PHARMACEUTICAL COMPANY, INC.-CLCY20110104

PATIENT
  Sex: Female
  Weight: 77.18 kg

DRUGS (2)
  1. COLCRYS [Suspect]
     Indication: SKIN LESION
     Route: 048
     Dates: start: 20110701, end: 20110701
  2. COLCRYS [Suspect]
     Route: 048
     Dates: start: 20110701, end: 20110802

REACTIONS (4)
  - MUSCULAR WEAKNESS [None]
  - PARALYSIS [None]
  - OFF LABEL USE [None]
  - DIARRHOEA [None]
